FAERS Safety Report 10629121 (Version 1)
Quarter: 2014Q4

REPORT INFORMATION
  Report Type: Spontaneous
  Country: US (occurrence: None)
  Receive Date: 20141203
  Receipt Date: 20141203
  Transmission Date: 20150529
  Serious: Yes (Other)
  Sender: FDA-Public Use
  Company Number: None

PATIENT
  Age: 48 Year
  Sex: Male
  Weight: 89.81 kg

DRUGS (2)
  1. OXYCODONE [Suspect]
     Active Substance: OXYCODONE
     Indication: PAIN
     Dosage: 1 TABLET 4XDAILY, FOUR TIMES DAILY, TAKEN BY MOUTH
     Route: 048
     Dates: start: 20131224, end: 20141124
  2. OXYCODONE [Suspect]
     Active Substance: OXYCODONE
     Indication: POST LAMINECTOMY SYNDROME
     Dosage: 1 TABLET 4XDAILY, FOUR TIMES DAILY, TAKEN BY MOUTH
     Route: 048
     Dates: start: 20131224, end: 20141124

REACTIONS (4)
  - Inadequate analgesia [None]
  - Product colour issue [None]
  - Product substitution issue [None]
  - Product physical consistency issue [None]

NARRATIVE: CASE EVENT DATE: 20141124
